FAERS Safety Report 8333002-3 (Version None)
Quarter: 2012Q2

REPORT INFORMATION
  Report Type: 
  Country: None (occurrence: None)
  Receive Date: 20120503
  Receipt Date: 20120426
  Transmission Date: 20120825
  Serious: Yes (Death, Other)
  Sender: FDA-Public Use
  Company Number: FR-BRISTOL-MYERS SQUIBB COMPANY-16554552

PATIENT
  Age: 78 Year
  Sex: Male

DRUGS (10)
  1. RAMIPRIL [Concomitant]
     Indication: HYPERTENSION
  2. FUROSEMIDE [Concomitant]
     Indication: HYPERTENSION
  3. SPIRIVA [Concomitant]
  4. FLUTICASONE PROPIONATE/SALMETEROL [Concomitant]
     Dosage: 1DF=2 PUFFS PER DAY
  5. SINGULAIR [Concomitant]
     Indication: CHRONIC OBSTRUCTIVE PULMONARY DISEASE
  6. FUROSEMIDE [Concomitant]
     Dosage: FUROSEMIDE KABI 20 MG/2ML  11MAR12:1060MG/DAY
     Route: 042
     Dates: start: 20120303
  7. COUMADIN [Suspect]
     Indication: ATRIAL FIBRILLATION
     Dates: start: 20120305
  8. CORDARONE [Suspect]
     Indication: ATRIAL FIBRILLATION
     Dosage: 3TABS 1ST DAY THEN 2TBS
     Route: 048
     Dates: start: 20120305, end: 20120308
  9. VENTOLIN [Concomitant]
  10. LASIX [Concomitant]
     Dosage: 4MAR2012,3TAB 40 MG 5MAR2012,2.5 TAB 40 MG 6MAR2012,2.5 TAB40 MG
     Dates: start: 20120303, end: 20120310

REACTIONS (4)
  - CYTOLYTIC HEPATITIS [None]
  - CARDIAC FAILURE CHRONIC [None]
  - SEPSIS [None]
  - CHOLESTASIS [None]
